FAERS Safety Report 18183790 (Version 4)
Quarter: 2020Q4

REPORT INFORMATION
  Report Type: Report from Study
  Country: CA (occurrence: CA)
  Receive Date: 20200823
  Receipt Date: 20201012
  Transmission Date: 20210113
  Serious: Yes (Other)
  Sender: FDA-Public Use
  Company Number: CA-UCBSA-2020032143

PATIENT
  Age: 68 Year
  Sex: Female

DRUGS (1)
  1. CERTOLIZUMAB PEGOL RA [Suspect]
     Active Substance: CERTOLIZUMAB PEGOL
     Indication: RHEUMATOID ARTHRITIS
     Dosage: 200 MILLIGRAM, EV 2 WEEKS(QOW)
     Route: 058
     Dates: start: 20160919

REACTIONS (12)
  - Head injury [Unknown]
  - Feeling hot [Recovering/Resolving]
  - Body temperature increased [Unknown]
  - Hyperhidrosis [Recovering/Resolving]
  - Fall [Unknown]
  - Headache [Unknown]
  - Diarrhoea [Recovering/Resolving]
  - Intentional dose omission [Unknown]
  - Rheumatoid arthritis [Unknown]
  - Nausea [Recovering/Resolving]
  - Migraine [Unknown]
  - Head discomfort [Unknown]

NARRATIVE: CASE EVENT DATE: 2020
